FAERS Safety Report 6309174-9 (Version None)
Quarter: 2009Q3

REPORT INFORMATION
  Report Type: 
  Country: None (occurrence: None)
  Receive Date: 20090814
  Receipt Date: 20090604
  Transmission Date: 20100115
  Serious: No
  Sender: FDA-Public Use
  Company Number: A0788822A

PATIENT
  Age: 84 Year
  Sex: Male

DRUGS (8)
  1. COREG CR [Suspect]
     Dosage: 40MG PER DAY
     Route: 048
     Dates: start: 20090301
  2. PROZAC [Concomitant]
  3. ZOCOR [Concomitant]
  4. AVODART [Concomitant]
  5. VITAMINS [Concomitant]
  6. NASAL SPRAY [Concomitant]
  7. COREG [Concomitant]
  8. COREG [Concomitant]
     Route: 048

REACTIONS (2)
  - DYSPNOEA [None]
  - VISUAL IMPAIRMENT [None]
